FAERS Safety Report 21756128 (Version 1)
Quarter: 2022Q4

REPORT INFORMATION
  Report Type: Spontaneous
  Country: US (occurrence: US)
  Receive Date: 20221220
  Receipt Date: 20221220
  Transmission Date: 20230113
  Serious: No
  Sender: FDA-Public Use
  Company Number: US-SA-SAC20221219001732

PATIENT
  Sex: Female

DRUGS (2)
  1. AUBAGIO [Suspect]
     Active Substance: TERIFLUNOMIDE
     Indication: Multiple sclerosis
     Dosage: 14 MG, QD
     Route: 048
     Dates: start: 201709
  2. BOTOX [Concomitant]
     Active Substance: ONABOTULINUMTOXINA

REACTIONS (2)
  - Musculoskeletal disorder [Not Recovered/Not Resolved]
  - Dysgraphia [Not Recovered/Not Resolved]
